FAERS Safety Report 23498757 (Version 1)
Quarter: 2024Q1

REPORT INFORMATION
  Report Type: Report from Study
  Country: US (occurrence: US)
  Receive Date: 20240208
  Receipt Date: 20240208
  Transmission Date: 20240409
  Serious: Yes (Other)
  Sender: FDA-Public Use
  Company Number: US-ABBVIE-5623431

PATIENT
  Sex: Male

DRUGS (4)
  1. SKYRIZI [Suspect]
     Active Substance: RISANKIZUMAB-RZAA
     Indication: Psoriasis
     Dosage: FORM STRENGTH: 150 MILLIGRAM, ?WEEK 4
     Route: 058
     Dates: start: 20230103, end: 20230103
  2. SKYRIZI [Suspect]
     Active Substance: RISANKIZUMAB-RZAA
     Dosage: FORM STRENGTH: 150 MILLIGRAM, ?WEEK 0
     Route: 058
     Dates: start: 20221205, end: 20221205
  3. SKYRIZI [Suspect]
     Active Substance: RISANKIZUMAB-RZAA
     Dosage: FORM STRENGTH: 150 MILLIGRAM, ?THEN EVERY 12 WEEKS THEREAFTER
     Route: 058
     Dates: start: 20231212
  4. EPSOM SALT [Concomitant]
     Active Substance: MAGNESIUM SULFATE
     Indication: Product used for unknown indication
     Dosage: EPSOM SALT BATHS
     Route: 065

REACTIONS (3)
  - Musculoskeletal disorder [Unknown]
  - Post procedural complication [Unknown]
  - Localised infection [Unknown]

NARRATIVE: CASE EVENT DATE: 20240101
